FAERS Safety Report 6066000-3 (Version None)
Quarter: 2009Q1

REPORT INFORMATION
  Report Type: 
  Country: None (occurrence: None)
  Receive Date: 20090130
  Receipt Date: 20090119
  Transmission Date: 20090719
  Serious: Yes (Hospitalization)
  Sender: FDA-Public Use
  Company Number: FR-1168452

PATIENT
  Age: 78 Year
  Sex: Male

DRUGS (5)
  1. TOBRADEX [Suspect]
     Dosage: NI, OPHTHALMIC
     Route: 047
     Dates: start: 20081006, end: 20081006
  2. NEOSYNEPHRINE (PHENYLEPHRINE HYDROCHLORIDE) [Concomitant]
  3. PILOCARPINE (PILOCARPHINE HYDROCHLORIDE) [Concomitant]
  4. STERDEX (STER-DEX) [Concomitant]
  5. TROPICAMIDE [Concomitant]

REACTIONS (6)
  - EYE INFECTION INTRAOCULAR [None]
  - EYE INFLAMMATION [None]
  - HYPOPYON [None]
  - UVEITIS [None]
  - VISUAL ACUITY REDUCED [None]
  - VITRITIS [None]
